FAERS Safety Report 8180014-9 (Version None)
Quarter: 2012Q1

REPORT INFORMATION
  Report Type: 
  Country: None (occurrence: None)
  Receive Date: 20120229
  Receipt Date: 20120216
  Transmission Date: 20120608
  Serious: Yes (Hospitalization)
  Sender: FDA-Public Use
  Company Number: TCI2012A00737

PATIENT
  Age: 71 Year
  Sex: Female

DRUGS (13)
  1. KINEDAK (EPRALRESTAT) [Concomitant]
  2. TRICOR [Concomitant]
  3. ACTOS [Suspect]
     Indication: TYPE 2 DIABETES MELLITUS
     Dosage: 15 MG (15 MG, 1 D), PER ORAL, 7.5 MG (7.5 MG, 1 D), 15 MG (15 MG, 1 D)
     Route: 048
     Dates: start: 20100331, end: 20100531
  4. ACTOS [Suspect]
     Indication: TYPE 2 DIABETES MELLITUS
     Dosage: 15 MG (15 MG, 1 D), PER ORAL, 7.5 MG (7.5 MG, 1 D), 15 MG (15 MG, 1 D)
     Route: 048
     Dates: start: 20100630
  5. ACTOS [Suspect]
     Indication: TYPE 2 DIABETES MELLITUS
     Dosage: 15 MG (15 MG, 1 D), PER ORAL, 7.5 MG (7.5 MG, 1 D), 15 MG (15 MG, 1 D)
     Route: 048
     Dates: start: 20100601, end: 20100629
  6. METFORMIN HCL [Concomitant]
  7. INNOLET R (INSULIN HUMAN) [Concomitant]
  8. LEVEMIR [Concomitant]
  9. AMARYL [Concomitant]
  10. OLMESARTAN MEDOXOMIL [Concomitant]
  11. METHYLCOBAL (MECOBALAMIN) [Concomitant]
  12. NORVASC [Concomitant]
  13. JANUVIA [Concomitant]

REACTIONS (3)
  - DIABETES MELLITUS INADEQUATE CONTROL [None]
  - FOOT FRACTURE [None]
  - LIGAMENT SPRAIN [None]
